FAERS Safety Report 5919494-5 (Version None)
Quarter: 2008Q3

REPORT INFORMATION
  Report Type: 
  Country: None (occurrence: None)
  Receive Date: 20080909
  Receipt Date: 20070404
  Transmission Date: 20090109
  Serious: Yes (Hospitalization, Other)
  Sender: FDA-Public Use
  Company Number: 163-20785-07040366

PATIENT
  Age: 66 Year
  Sex: Female

DRUGS (32)
  1. THALOMID [Suspect]
     Indication: MULTIPLE MYELOMA
     Dosage: 100 MG, QD, ORAL
     Route: 047
     Dates: start: 20061220, end: 20070216
  2. DEXAMETHASONE TAB [Suspect]
     Indication: MULTIPLE MYELOMA
     Dosage: 20 MG, QD X 4 DAYS EVERY 21 DAYS, ORAL ; 20 MG, QD X 4 DAYS EVERY 21 DAYS, ORAL
     Route: 048
     Dates: start: 20070109, end: 20070112
  3. VELCADE [Suspect]
     Indication: MULTIPLE MYELOMA
     Dosage: 1.2 MG, DAYS 1, 4 , + 11 EVERY 28 DAYS, INTRAVENOUS
     Route: 042
     Dates: start: 20070223, end: 20070305
  4. CISPLATIN [Suspect]
     Indication: MULTIPLE MYELOMA
  5. ADRIAMYCIN PFS [Suspect]
     Indication: MULTIPLE MYELOMA
  6. CYCLOPHOSPHAMIDE [Suspect]
     Indication: MULTIPLE MYELOMA
  7. ETOPOSIDE [Suspect]
     Indication: MULTIPLE MYELOMA
  8. COUMADIN [Concomitant]
  9. LEVAQUIN (LEVOFLOXACIN) (500 MILLIGRAM, TABLETS) [Concomitant]
  10. ACYCLOVIR (ACICLOVIR) (400 MILLIGRAM) [Concomitant]
  11. NEXIUM (ESOMEPRAZOLE) (40 MILLIGRAM) [Concomitant]
  12. AMITRIPTYLINE HCL (AMITRIPTYLINE HYDROCHLORIDE) [Concomitant]
  13. PROCRIT (ERYTHROPOIETIN) (SOLUTION) [Concomitant]
  14. LOVENOX [Concomitant]
  15. METOPROLOL TARTRATE (METOPROLOL TARTATE) [Concomitant]
  16. FOLIC ACID (FOLIC ACID) (1 MILLIGRAM, TABLETS) [Concomitant]
  17. MULTI-DAY (MULTIVITAMINS) (TABLETS) [Concomitant]
  18. OXYCODONE HCL (OXYCODONE) (TABLETS) [Concomitant]
  19. OXYCONTIN (OXYCODONE HYDROCHLORIDE) (TABLETS) [Concomitant]
  20. MAGNESIUM OXIDE (MAGNESIUM OXIDE) (TABLETS) [Concomitant]
  21. K-DUR (POTASSIUM CHLORIDE) (TABLETS) [Concomitant]
  22. SALAGEN (PILOCARPINE HYDROCHLORIDE) (TABLETS) [Concomitant]
  23. REGLAN (METOCLOPRAMIDE) (10 MILLIGRAM, TABLETS) [Concomitant]
  24. DIFLUCAN (FLUCONAZOLE) (200 MILLIGRAM, TABLETS) [Concomitant]
  25. FLAGYL (METRONIDAZOLE) (250 MILLIGRAM, TABLETS) [Concomitant]
  26. INVANZ (ERTAPENEM SODIUM) [Concomitant]
  27. ZYRTEC [Concomitant]
  28. LYRICA (PREGABALIN) (CAPSULES) [Concomitant]
  29. LOMOTIL (LOMOTIL) (TABLETS) [Concomitant]
  30. MAGIC MOUTHWASH [Concomitant]
  31. ERYTHROPOIETIN (EPOETIN ALFA) [Concomitant]
  32. PROCRIT [Concomitant]

REACTIONS (3)
  - COLITIS [None]
  - CONVULSION [None]
  - METABOLIC ACIDOSIS [None]
